FAERS Safety Report 5334274-X (Version None)
Quarter: 2007Q2

REPORT INFORMATION
  Report Type: 
  Country: None (occurrence: None)
  Receive Date: 20070525
  Receipt Date: 20070516
  Transmission Date: 20071010
  Serious: Yes (Other)
  Sender: FDA-Public Use
  Company Number: PHEH2007US07389

PATIENT
  Age: 82 Year
  Sex: Male

DRUGS (1)
  1. ZELNORM [Suspect]
     Indication: IRRITABLE BOWEL SYNDROME
     Dosage: 6 MG, 1/2 QD
     Route: 048
     Dates: start: 20040101, end: 20070514

REACTIONS (6)
  - ABDOMINAL DISTENSION [None]
  - CHEST DISCOMFORT [None]
  - CHEST PAIN [None]
  - LYMPHADENOPATHY [None]
  - ORAL INTAKE REDUCED [None]
  - RECTAL HAEMORRHAGE [None]
